FAERS Safety Report 7933581-1 (Version None)
Quarter: 2011Q4

REPORT INFORMATION
  Report Type: 
  Country: None (occurrence: None)
  Receive Date: 20111122
  Receipt Date: 20111117
  Transmission Date: 20120403
  Serious: Yes (Hospitalization)
  Sender: FDA-Public Use
  Company Number: FR-ELI_LILLY_AND_COMPANY-FR201111005873

PATIENT
  Sex: Male

DRUGS (6)
  1. DURAGESIC-100 [Concomitant]
     Dosage: 50 UG, UNK
     Route: 062
  2. CRESTOR [Concomitant]
     Dosage: 10 MG, UNK
     Route: 048
  3. PROZAC [Concomitant]
  4. ALIMTA [Suspect]
     Indication: LUNG ADENOCARCINOMA
     Dosage: 500 MG, UNK
     Route: 042
     Dates: start: 20110901, end: 20110901
  5. ASPIRIN [Concomitant]
     Dosage: 75 MG, UNK
     Route: 048
  6. NOCTAMIDE [Concomitant]
     Dosage: 2 MG, UNK
     Route: 048

REACTIONS (4)
  - THROMBOCYTOPENIA [None]
  - VOMITING [None]
  - RASH GENERALISED [None]
  - NORMOCHROMIC NORMOCYTIC ANAEMIA [None]
